FAERS Safety Report 7099513-6 (Version None)
Quarter: 2010Q4

REPORT INFORMATION
  Report Type: 
  Country: None (occurrence: None)
  Receive Date: 20101112
  Receipt Date: 20101102
  Transmission Date: 20110411
  Serious: Yes (Hospitalization)
  Sender: FDA-Public Use
  Company Number: US-GENZYME-CLOF-1001300

PATIENT
  Sex: Male

DRUGS (4)
  1. CLOFARABINE [Suspect]
     Indication: MYELODYSPLASTIC SYNDROME
     Dosage: 25 MG, QDX5
     Route: 048
     Dates: start: 20101025, end: 20101029
  2. SODIUM BICARBONATE [Concomitant]
  3. KAYEXALATE [Concomitant]
  4. METOPROLOL [Concomitant]
     Dosage: UNK

REACTIONS (3)
  - ARRHYTHMIA [None]
  - DEHYDRATION [None]
  - RENAL FAILURE [None]
